FAERS Safety Report 17690144 (Version 2)
Quarter: 2020Q3

REPORT INFORMATION
  Report Type: Report from Study
  Country: CA (occurrence: CA)
  Receive Date: 20200421
  Receipt Date: 20200904
  Transmission Date: 20201102
  Serious: Yes (Other)
  Sender: FDA-Public Use
  Company Number: PHHY2019CA207350

PATIENT
  Age: 72 Year
  Sex: Female

DRUGS (3)
  1. COSENTYX [Suspect]
     Active Substance: SECUKINUMAB
     Dosage: 150 MG, QMO (SENSOREADY PEN)
     Route: 058
     Dates: start: 20200802
  2. METHOTREXATE. [Concomitant]
     Active Substance: METHOTREXATE
     Indication: PRODUCT USED FOR UNKNOWN INDICATION
     Dosage: UNK
     Route: 065
     Dates: start: 201802
  3. COSENTYX [Suspect]
     Active Substance: SECUKINUMAB
     Indication: PSORIATIC ARTHROPATHY
     Dosage: 150 MG, QMO
     Route: 058
     Dates: start: 20181005

REACTIONS (16)
  - Gingival swelling [Unknown]
  - Nasopharyngitis [Not Recovered/Not Resolved]
  - Neck pain [Unknown]
  - Pain [Unknown]
  - C-reactive protein increased [Unknown]
  - Dysphonia [Not Recovered/Not Resolved]
  - Osteoarthritis [Unknown]
  - Discomfort [Unknown]
  - Joint swelling [Unknown]
  - Nervousness [Unknown]
  - Musculoskeletal stiffness [Unknown]
  - Arthralgia [Unknown]
  - Back pain [Unknown]
  - Peripheral swelling [Unknown]
  - Fatigue [Unknown]
  - Drug ineffective [Unknown]

NARRATIVE: CASE EVENT DATE: 201810
